FAERS Safety Report 8202139-1 (Version None)
Quarter: 2012Q1

REPORT INFORMATION
  Report Type: 
  Country: None (occurrence: None)
  Receive Date: 20120308
  Receipt Date: 20120223
  Transmission Date: 20120608
  Serious: Yes (Other)
  Sender: FDA-Public Use
  Company Number: JPI-P-019969

PATIENT
  Age: 78 Year
  Sex: Female

DRUGS (1)
  1. XYREM [Suspect]
     Indication: CATAPLEXY
     Dosage: 7.5 GM (3.75 GM,2 IN 1 D),ORAL
     Route: 048
     Dates: start: 20020927

REACTIONS (4)
  - ECZEMA [None]
  - DRUG HYPERSENSITIVITY [None]
  - HIP ARTHROPLASTY [None]
  - URINARY INCONTINENCE [None]
